APPROVED DRUG PRODUCT: CONDYLOX
Active Ingredient: PODOFILOX
Strength: 0.5%
Dosage Form/Route: SOLUTION;TOPICAL
Application: N019795 | Product #001 | TE Code: AT
Applicant: TEVA BRANDED PHARMACEUTICAL PRODUCTS R AND D INC
Approved: Dec 13, 1990 | RLD: Yes | RS: Yes | Type: RX